FAERS Safety Report 4624691-5 (Version None)
Quarter: 2005Q1

REPORT INFORMATION
  Report Type: 
  Country: None (occurrence: None)
  Receive Date: 20050107
  Receipt Date: 20040908
  Transmission Date: 20050727
  Serious: No
  Sender: FDA-Public Use
  Company Number: 233655K04USA

PATIENT
  Age: 53 Year
  Sex: Female

DRUGS (6)
  1. REBIF [Suspect]
     Indication: MULTIPLE SCLEROSIS
     Dosage: 44 MCG, 3 IN 1 WEEKS, SUBCUTANEOUS
     Route: 058
     Dates: start: 20040511
  2. NEURONTIN [Concomitant]
  3. DITROPAN [Concomitant]
  4. ZANAFLEX [Concomitant]
  5. XANAX [Concomitant]
  6. SYNTHROID [Concomitant]

REACTIONS (4)
  - CERVICAL DYSPLASIA [None]
  - RASH ERYTHEMATOUS [None]
  - RASH MACULO-PAPULAR [None]
  - URINARY TRACT INFECTION [None]
